FAERS Safety Report 5281158-1 (Version None)
Quarter: 2007Q1

REPORT INFORMATION
  Report Type: 
  Country: None (occurrence: None)
  Receive Date: 20070329
  Receipt Date: 20070321
  Transmission Date: 20070707
  Serious: Yes (Hospitalization)
  Sender: FDA-Public Use
  Company Number: SE-MERCK-0703SWE00051

PATIENT
  Age: 5 Year
  Sex: Male

DRUGS (2)
  1. SINGULAIR [Suspect]
     Indication: RESPIRATORY TRACT INFECTION
     Route: 048
     Dates: start: 20060101, end: 20070301
  2. CORTISONE [Concomitant]
     Dates: end: 20060901

REACTIONS (4)
  - ADRENAL INSUFFICIENCY [None]
  - DEPRESSION [None]
  - FATIGUE [None]
  - HYPOGLYCAEMIA [None]
